FAERS Safety Report 8547564-4 (Version None)
Quarter: 2012Q3

REPORT INFORMATION
  Report Type: 
  Country: None (occurrence: None)
  Receive Date: 20120727
  Receipt Date: 20120402
  Transmission Date: 20120928
  Serious: No
  Sender: FDA-Public Use
  Company Number: US-ASTRAZENECA-2012SE22091

PATIENT
  Age: 63 Year
  Sex: Female

DRUGS (3)
  1. SEROQUEL [Suspect]
     Dosage: 100 MILLIGRAMS AT NOON.
     Route: 048
     Dates: start: 20120323
  2. SEROQUEL [Suspect]
     Route: 048
     Dates: start: 20120323
  3. SEROQUEL [Suspect]
     Indication: BIPOLAR DISORDER
     Route: 048
     Dates: start: 20120323

REACTIONS (2)
  - OBESITY [None]
  - WRONG TECHNIQUE IN DRUG USAGE PROCESS [None]
